APPROVED DRUG PRODUCT: DEMECLOCYCLINE HYDROCHLORIDE
Active Ingredient: DEMECLOCYCLINE HYDROCHLORIDE
Strength: 150MG
Dosage Form/Route: TABLET;ORAL
Application: A065425 | Product #001 | TE Code: AB
Applicant: AMNEAL PHARMACEUTICAL
Approved: Feb 27, 2008 | RLD: No | RS: No | Type: RX